FAERS Safety Report 9238884 (Version 2)
Quarter: 2013Q2

REPORT INFORMATION
  Report Type: Spontaneous
  Country: NL (occurrence: NL)
  Receive Date: 20130418
  Receipt Date: 20130418
  Transmission Date: 20140414
  Serious: Yes (Death)
  Sender: FDA-Public Use
  Company Number: NL-BAXTER-2013BAX006306

PATIENT
  Age: 63 Year
  Sex: Male

DRUGS (6)
  1. PHYSIONEAL 40 GLUCOSE 3.86% W/V / 38.6 MG/ML [Suspect]
     Indication: RENAL FAILURE
     Route: 033
  2. PHYSIONEAL 40 GLUCOSE 3.86% W/V / 38.6 MG/ML [Suspect]
     Indication: DIABETES MELLITUS
  3. PHYSIONEAL 40 GLUCOSE 2.27% W/V / 22.7 MG/ML [Suspect]
     Indication: RENAL FAILURE
     Route: 033
  4. PHYSIONEAL 40 GLUCOSE 2.27% W/V / 22.7 MG/ML [Suspect]
     Indication: DIABETES MELLITUS
  5. EXTRANEAL [Suspect]
     Indication: RENAL FAILURE
     Route: 033
  6. EXTRANEAL [Suspect]
     Indication: DIABETES MELLITUS

REACTIONS (1)
  - Sudden cardiac death [Fatal]
